FAERS Safety Report 7008553-4 (Version None)
Quarter: 2010Q3

REPORT INFORMATION
  Report Type: 
  Country: None (occurrence: None)
  Receive Date: 20100922
  Receipt Date: 20100913
  Transmission Date: 20110219
  Serious: No
  Sender: FDA-Public Use
  Company Number: US-PFIZER INC-2010116263

PATIENT
  Sex: Female

DRUGS (3)
  1. XALATAN [Suspect]
     Indication: GLAUCOMA
     Dosage: ONE DROP IN EACH EYE ONCE DAILY
  2. FOSAMAX [Concomitant]
     Dosage: UNK
  3. TIMOLOL [Concomitant]
     Dosage: UNK

REACTIONS (1)
  - EYE IRRITATION [None]
